FAERS Safety Report 17041556 (Version 1)
Quarter: 2019Q4

REPORT INFORMATION
  Report Type: Spontaneous
  Country: US (occurrence: US)
  Receive Date: 20191118
  Receipt Date: 20191118
  Transmission Date: 20200122
  Serious: No
  Sender: FDA-Public Use
  Company Number: PHHY2019US042822

PATIENT
  Age: 83 Year
  Sex: Female

DRUGS (2)
  1. COUMADIN [Interacting]
     Active Substance: WARFARIN SODIUM
     Indication: ANTICOAGULANT THERAPY
     Dosage: UNK
     Route: 065
  2. DICLOFENAC SODIUM. [Suspect]
     Active Substance: DICLOFENAC SODIUM
     Indication: ARTHRITIS
     Dosage: 2 G, BID
     Route: 061

REACTIONS (4)
  - Drug interaction [Not Recovered/Not Resolved]
  - Off label use [Unknown]
  - Blood test abnormal [Not Recovered/Not Resolved]
  - Inappropriate schedule of product administration [Unknown]
